FAERS Safety Report 9356052 (Version 1)
Quarter: 2013Q2

REPORT INFORMATION
  Report Type: Report from Study
  Country: US (occurrence: US)
  Receive Date: 20130619
  Receipt Date: 20130619
  Transmission Date: 20140414
  Serious: Yes (Other)
  Sender: FDA-Public Use
  Company Number: US-UCBSA-088721

PATIENT
  Sex: Male
  Weight: 59.09 kg

DRUGS (1)
  1. CIMZIA [Suspect]
     Indication: CROHN^S DISEASE

REACTIONS (11)
  - Crohn^s disease [Unknown]
  - Injection site pain [Unknown]
  - Dyspnoea [Unknown]
  - Dizziness [Unknown]
  - Abdominal discomfort [Unknown]
  - Diarrhoea [Unknown]
  - Hyperhidrosis [Unknown]
  - Adverse event [Unknown]
  - Feeling abnormal [Unknown]
  - Quality of life decreased [Unknown]
  - Drug ineffective [Unknown]
